FAERS Safety Report 6360127-4 (Version None)
Quarter: 2009Q3

REPORT INFORMATION
  Report Type: 
  Country: None (occurrence: None)
  Receive Date: 20090917
  Receipt Date: 20090904
  Transmission Date: 20100115
  Serious: No
  Sender: FDA-Public Use
  Company Number: US-B.I. PHARMACEUTICALS,INC./RIDGEFIELD-2009-BP-07974BP

PATIENT
  Sex: Female

DRUGS (7)
  1. SPIRIVA [Suspect]
     Indication: CHRONIC OBSTRUCTIVE PULMONARY DISEASE
     Dosage: 18 MCG
     Route: 055
     Dates: start: 20090501
  2. SPIRIVA [Suspect]
     Indication: BRONCHIECTASIS
  3. ADVAIR HFA [Concomitant]
  4. DIGOXIN [Concomitant]
  5. LOPRESSOR [Concomitant]
  6. HYDROCHLOROTHIAZIDE [Concomitant]
  7. ELAVIL [Concomitant]

REACTIONS (1)
  - ASTHMA [None]
